FAERS Safety Report 16203821 (Version 2)
Quarter: 2019Q2

REPORT INFORMATION
  Report Type: Spontaneous
  Country: JP (occurrence: JP)
  Receive Date: 20190416
  Receipt Date: 20190522
  Transmission Date: 20190711
  Serious: No
  Sender: FDA-Public Use
  Company Number: JP-PFIZER INC-2019154006

PATIENT
  Age: 8 Decade
  Sex: Male

DRUGS (1)
  1. PRECEDEX [Suspect]
     Active Substance: DEXMEDETOMIDINE HYDROCHLORIDE
     Dosage: UNK (DOSAGE FOLLOWED THE DRUG LABEL)

REACTIONS (1)
  - Drug ineffective [Unknown]
